FAERS Safety Report 11659315 (Version 4)
Quarter: 2020Q4

REPORT INFORMATION
  Report Type: Spontaneous
  Country: PL (occurrence: PL)
  Receive Date: 20151026
  Receipt Date: 20201127
  Transmission Date: 20210113
  Serious: Yes (Other)
  Sender: FDA-Public Use
  Company Number: PL-ACCORD-034697

PATIENT
  Age: 63 Year
  Sex: Male
  Weight: 92 kg

DRUGS (5)
  1. AMLODIPINE [Suspect]
     Active Substance: AMLODIPINE BESYLATE
     Indication: HYPERTENSION
  2. SIMVASTATIN. [Interacting]
     Active Substance: SIMVASTATIN
     Indication: HYPERLIPIDAEMIA
  3. TRANDOLAPRIL. [Suspect]
     Active Substance: TRANDOLAPRIL
     Indication: HYPERTENSION
  4. INDAPAMIDE/INDAPAMIDE HEMIHYDRATE [Suspect]
     Active Substance: INDAPAMIDE
     Indication: HYPERTENSION
     Dosage: SUSTAINED RELEASE
  5. PERINDOPRIL/PERINDOPRIL ERBUMINE [Suspect]
     Active Substance: PERINDOPRIL ERBUMINE
     Indication: HYPERTENSION

REACTIONS (10)
  - Confusional state [Recovered/Resolved]
  - Asthenia [Recovered/Resolved]
  - Myalgia [Recovered/Resolved]
  - Muscular weakness [Recovered/Resolved]
  - Dizziness [Recovered/Resolved]
  - Feeling abnormal [Recovered/Resolved]
  - Motor dysfunction [Recovered/Resolved]
  - Drug interaction [Unknown]
  - Depression [Recovered/Resolved]
  - Coordination abnormal [Recovered/Resolved]

NARRATIVE: CASE EVENT DATE: 2015
